FAERS Safety Report 24443643 (Version 2)
Quarter: 2024Q4

REPORT INFORMATION
  Report Type: Report from Study
  Country: US (occurrence: US)
  Receive Date: 20241016
  Receipt Date: 20241017
  Transmission Date: 20250115
  Serious: No
  Sender: ROCHE
  Company Number: US-ROCHE-2092961

PATIENT
  Age: 77 Year
  Sex: Female

DRUGS (10)
  1. RITUXAN [Suspect]
     Active Substance: RITUXIMAB
     Indication: Nephritic syndrome
     Dosage: VIAL, INFUSE 1000 MG (NEXT DATE OF TREATMENT: 12/MAR/2018) (DATE OF SERVICE: 10/OCT/2019, 08/JUN/202
     Route: 041
  2. RITUXAN [Suspect]
     Active Substance: RITUXIMAB
     Indication: Glomerulonephritis membranous
     Dosage: VIAL, INFUSE 500 MG (NEXT DATE OF TREATMENT: 08/DEC/2020, 09/DEC/2021, 09/JUN/2022)
     Route: 041
  3. ALLOPURINOL [Concomitant]
     Active Substance: ALLOPURINOL
  4. FUROSEMIDE [Concomitant]
     Active Substance: FUROSEMIDE
  5. LISINOPRIL [Concomitant]
     Active Substance: LISINOPRIL
  6. METOPROLOL TARTRATE [Concomitant]
     Active Substance: METOPROLOL TARTRATE
  7. PROTONIX [Concomitant]
     Active Substance: PANTOPRAZOLE SODIUM
  8. CALCITRIOL [Concomitant]
     Active Substance: CALCITRIOL
  9. FERROUS SULFATE [Concomitant]
     Active Substance: FERROUS SULFATE
  10. CALCIUM CARBONATE\CHOLECALCIFEROL [Concomitant]
     Active Substance: CALCIUM CARBONATE\CHOLECALCIFEROL

REACTIONS (2)
  - Off label use [Unknown]
  - No adverse event [Unknown]
